FAERS Safety Report 8200372-6 (Version None)
Quarter: 2012Q1

REPORT INFORMATION
  Report Type: 
  Country: None (occurrence: None)
  Receive Date: 20120309
  Receipt Date: 20120309
  Transmission Date: 20120608
  Serious: Yes (Hospitalization)
  Sender: FDA-Public Use
  Company Number: None

PATIENT
  Sex: Female
  Weight: 64.5 kg

DRUGS (3)
  1. NEULASTA [Suspect]
     Dosage: 6 MG
  2. TAXOL [Suspect]
     Dosage: 135 MG
  3. IFOSFAMIDE [Suspect]
     Dosage: 8.28 G

REACTIONS (1)
  - NEUTROPHIL COUNT DECREASED [None]
